FAERS Safety Report 8532170-8 (Version None)
Quarter: 2012Q3

REPORT INFORMATION
  Report Type: 
  Country: None (occurrence: None)
  Receive Date: 20120723
  Receipt Date: 20120605
  Transmission Date: 20120928
  Serious: Yes (Hospitalization)
  Sender: FDA-Public Use
  Company Number: DE-GLAXOSMITHKLINE-B0808280A

PATIENT
  Sex: Female
  Weight: 85 kg

DRUGS (3)
  1. XELODA [Concomitant]
     Indication: BREAST CANCER METASTATIC
     Dosage: 1000MG TWICE PER DAY
     Route: 048
     Dates: start: 20110908, end: 20120325
  2. LAPATINIB [Suspect]
     Indication: BREAST CANCER METASTATIC
     Route: 065
     Dates: start: 20110308, end: 20120325
  3. METOPROLOL SUCCINATE [Concomitant]
     Indication: HYPERTENSION
     Route: 048
     Dates: start: 20030101

REACTIONS (7)
  - STOMATITIS [None]
  - VOMITING [None]
  - FATIGUE [None]
  - PAIN IN EXTREMITY [None]
  - RASH [None]
  - DEHYDRATION [None]
  - DIARRHOEA [None]
